FAERS Safety Report 11789439 (Version 1)
Quarter: 2015Q4

REPORT INFORMATION
  Report Type: Spontaneous
  Country: US (occurrence: None)
  Receive Date: 20151130
  Receipt Date: 20151130
  Transmission Date: 20160305
  Serious: No
  Sender: FDA-Public Use
  Company Number: None

PATIENT
  Age: 48 Year
  Sex: Female

DRUGS (1)
  1. COPAXONE [Suspect]
     Active Substance: GLATIRAMER ACETATE
     Indication: MULTIPLE SCLEROSIS
     Route: 058
     Dates: start: 20141217, end: 20151123

REACTIONS (4)
  - Rash generalised [None]
  - Urticaria [None]
  - Lip swelling [None]
  - Muscle spasms [None]

NARRATIVE: CASE EVENT DATE: 20151123
